FAERS Safety Report 20511507 (Version 2)
Quarter: 2022Q1

REPORT INFORMATION
  Report Type: Spontaneous
  Country: US (occurrence: US)
  Receive Date: 20220224
  Receipt Date: 20220314
  Transmission Date: 20220423
  Serious: Yes (Other)
  Sender: FDA-Public Use
  Company Number: US-TEVA-2022-US-2009217

PATIENT
  Age: 50 Year
  Sex: Female

DRUGS (3)
  1. HYDROXYCHLOROQUINE [Suspect]
     Active Substance: HYDROXYCHLOROQUINE
     Indication: Systemic lupus erythematosus
     Route: 065
  2. PREDNISONE [Suspect]
     Active Substance: PREDNISONE
     Indication: Systemic lupus erythematosus
     Dosage: LOW-DOSE
     Route: 065
  3. FLUCONAZOLE [Suspect]
     Active Substance: FLUCONAZOLE
     Indication: Cutaneous coccidioidomycosis
     Dosage: 400 MILLIGRAM DAILY;
     Route: 065

REACTIONS (2)
  - Cutaneous coccidioidomycosis [Recovered/Resolved]
  - Electrocardiogram QT prolonged [Unknown]
